FAERS Safety Report 5319734-X (Version None)
Quarter: 2007Q2

REPORT INFORMATION
  Report Type: 
  Country: None (occurrence: None)
  Receive Date: 20070502
  Receipt Date: 20070416
  Transmission Date: 20071010
  Serious: Yes (Hospitalization)
  Sender: FDA-Public Use
  Company Number: FSC_00104_2007

PATIENT
  Sex: Female
  Weight: 50 kg

DRUGS (3)
  1. ISOPTIN [Suspect]
     Dosage: (20 TABLETS ONCE ORAL)
     Route: 048
     Dates: start: 20070415, end: 20070415
  2. ACETAMINOPHEN [Suspect]
     Dosage: (500 MG 1X 500 MG, 10 TABLETS ONCE ORAL)
     Route: 048
     Dates: start: 20070415, end: 20070415
  3. HYOSCINE HBR HYT [Suspect]
     Dosage: (10 MG 1X 10 MG, 10 TABLETS ONCE ORAL)
     Route: 048
     Dates: start: 20070415, end: 20070415

REACTIONS (5)
  - ATRIOVENTRICULAR BLOCK [None]
  - NAUSEA [None]
  - PALLOR [None]
  - SUICIDE ATTEMPT [None]
  - VOMITING [None]
